FAERS Safety Report 11275360 (Version 1)
Quarter: 2015Q3

REPORT INFORMATION
  Report Type: Spontaneous
  Country: US (occurrence: None)
  Receive Date: 20150714
  Receipt Date: 20150714
  Transmission Date: 20151125
  Serious: Yes (Hospitalization)
  Sender: FDA-Public Use
  Company Number: US-H14001-15-01161

PATIENT
  Age: 60 Year
  Sex: Male

DRUGS (10)
  1. VALPROATE [Suspect]
     Active Substance: VALPROATE SODIUM
     Indication: BIPOLAR DISORDER
  2. ESCITALOPRAM [Suspect]
     Active Substance: ESCITALOPRAM OXALATE
     Indication: BIPOLAR DISORDER
  3. FENTANYL (FENTANYL) (FENTANYL) [Suspect]
     Active Substance: FENTANYL
     Indication: AGITATION
  4. RISPERIDONE. [Suspect]
     Active Substance: RISPERIDONE
     Indication: BIPOLAR DISORDER
  5. LORAZEPAM. [Concomitant]
     Active Substance: LORAZEPAM
  6. CEFTRIAXONE. [Concomitant]
     Active Substance: CEFTRIAXONE
  7. VANCOMYCIN [Concomitant]
     Active Substance: VANCOMYCIN
  8. BUPROPION (BUPROPION) (UNKNOWN) (BUPROPION) [Suspect]
     Active Substance: BUPROPION
     Indication: BIPOLAR DISORDER
  9. PIPERACILLIN-TAZOBACTAM (PIP.TAZO) (PIPERACILLIN SODIUM, TAZOBACTAM SODIUM) [Concomitant]
  10. AZITHROMYCIN [Concomitant]
     Active Substance: AZITHROMYCIN ANHYDROUS

REACTIONS (17)
  - Neuroleptic malignant syndrome [None]
  - Hypernatraemia [None]
  - Blood creatine phosphokinase increased [None]
  - Hypocalcaemia [None]
  - Transaminases increased [None]
  - Muscle rigidity [None]
  - Hyporeflexia [None]
  - Serotonin syndrome [None]
  - Hypertension [None]
  - Respiratory failure [None]
  - Seizure [None]
  - Tachycardia [None]
  - Agitation [None]
  - Flushing [None]
  - Hyperhidrosis [None]
  - Hyperthermia malignant [None]
  - Lipase increased [None]
